FAERS Safety Report 22271372 (Version 1)
Quarter: 2023Q2

REPORT INFORMATION
  Report Type: Spontaneous
  Country: CN (occurrence: CN)
  Receive Date: 20230501
  Receipt Date: 20230501
  Transmission Date: 20230722
  Serious: Yes (Death, Life-Threatening)
  Sender: FDA-Public Use
  Company Number: CN-BAYER-2023A057318

PATIENT
  Age: 53 Year
  Sex: Female

DRUGS (9)
  1. RIVAROXABAN [Interacting]
     Active Substance: RIVAROXABAN
     Indication: Anticoagulant therapy
     Route: 048
  2. RIVAROXABAN [Interacting]
     Active Substance: RIVAROXABAN
     Dosage: UNK
     Route: 048
  3. ASPIRIN [Interacting]
     Active Substance: ASPIRIN
     Indication: Antiplatelet therapy
     Route: 065
  4. CLOPIDOGREL [Interacting]
     Active Substance: CLOPIDOGREL BISULFATE
     Indication: Antiplatelet therapy
  5. UNSPECIFIED INGREDIENT [Interacting]
     Active Substance: UNSPECIFIED INGREDIENT
     Indication: Anticoagulant therapy
     Route: 058
  6. UNSPECIFIED INGREDIENT [Interacting]
     Active Substance: UNSPECIFIED INGREDIENT
     Indication: Anticoagulant therapy
     Dosage: UNK
  7. TIROFIBAN [Suspect]
     Active Substance: TIROFIBAN
     Indication: Anticoagulant therapy
     Route: 042
  8. HEPARIN [Interacting]
     Active Substance: HEPARIN SODIUM
     Indication: Catheter management
  9. HEPARIN [Interacting]
     Active Substance: HEPARIN SODIUM
     Indication: Thrombosis prophylaxis

REACTIONS (5)
  - Gastrointestinal haemorrhage [Fatal]
  - Heparin-induced thrombocytopenia [Fatal]
  - Cardiac failure [Fatal]
  - Multiple organ dysfunction syndrome [Fatal]
  - Labelled drug-drug interaction medication error [Fatal]
